FAERS Safety Report 14911326 (Version 1)
Quarter: 2018Q2

REPORT INFORMATION
  Report Type: Spontaneous
  Country: ES (occurrence: ES)
  Receive Date: 20180518
  Receipt Date: 20180518
  Transmission Date: 20180711
  Serious: Yes (Hospitalization, Other)
  Sender: FDA-Public Use
  Company Number: ES-TAKEDA-2018TUS017198

PATIENT
  Age: 37 Year
  Sex: Male

DRUGS (2)
  1. BRINTELLIX [Suspect]
     Active Substance: VORTIOXETINE HYDROBROMIDE
     Indication: PSYCHOTIC DISORDER
     Dosage: UNK, QD
     Route: 048
     Dates: start: 20180227, end: 20180419
  2. DEPAKINE CRONO                     /00228502/ [Interacting]
     Active Substance: VALPROIC ACID
     Indication: EPILEPSY
     Dosage: 500 MG, Q8HR
     Route: 048
     Dates: start: 20180214

REACTIONS (2)
  - Product use in unapproved indication [Unknown]
  - Status epilepticus [Recovered/Resolved]

NARRATIVE: CASE EVENT DATE: 20180419
